FAERS Safety Report 19003733 (Version 2)
Quarter: 2021Q1

REPORT INFORMATION
  Report Type: Spontaneous
  Country: CA (occurrence: CA)
  Receive Date: 20210312
  Receipt Date: 20210329
  Transmission Date: 20210420
  Serious: Yes (Other)
  Sender: FDA-Public Use
  Company Number: CA-PFIZER INC-2021244833

PATIENT
  Age: 68 Year
  Sex: Female

DRUGS (1)
  1. XELJANZ XR [Suspect]
     Active Substance: TOFACITINIB CITRATE
     Indication: RHEUMATOID ARTHRITIS
     Dosage: 11 MG, 1X/DAY (XELJANZ XR 11MG TAB 1X30 BTL)
     Route: 048
     Dates: start: 20210112

REACTIONS (3)
  - Contusion [Not Recovered/Not Resolved]
  - White blood cell count increased [Unknown]
  - Thrombosis [Unknown]

NARRATIVE: CASE EVENT DATE: 2021
